FAERS Safety Report 10308579 (Version 1)
Quarter: 2014Q3

REPORT INFORMATION
  Report Type: Spontaneous
  Country: AR (occurrence: AR)
  Receive Date: 20140716
  Receipt Date: 20140716
  Transmission Date: 20150326
  Serious: Yes (Hospitalization)
  Sender: FDA-Public Use
  Company Number: AR-VIIV HEALTHCARE LIMITED-A1081182A

PATIENT
  Age: 43 Year
  Sex: Male

DRUGS (1)
  1. TELZIR [Suspect]
     Active Substance: FOSAMPRENAVIR CALCIUM
     Indication: HIV INFECTION
     Route: 065

REACTIONS (5)
  - Pneumonia [Recovered/Resolved]
  - Orthostatic hypertension [Unknown]
  - Areflexia [Unknown]
  - Oedema [Recovering/Resolving]
  - Paraesthesia [Not Recovered/Not Resolved]
